FAERS Safety Report 9116294 (Version 2)
Quarter: 2013Q2

REPORT INFORMATION
  Report Type: Spontaneous
  Country: IT (occurrence: IT)
  Receive Date: 20130225
  Receipt Date: 20130410
  Transmission Date: 20140414
  Serious: Yes (Hospitalization)
  Sender: FDA-Public Use
  Company Number: IT-PFIZER INC-2013066016

PATIENT
  Age: 35 Year
  Sex: Female

DRUGS (1)
  1. LOETTE [Suspect]
     Indication: CONTRACEPTION
     Dosage: 1 DF, TOTAL DOSE
     Route: 048
     Dates: start: 20130207, end: 20130207

REACTIONS (2)
  - Urticaria [Recovering/Resolving]
  - Pruritus generalised [Recovering/Resolving]
